FAERS Safety Report 15290633 (Version 1)
Quarter: 2018Q3

REPORT INFORMATION
  Report Type: Spontaneous
  Country: US (occurrence: US)
  Receive Date: 20180805
  Receipt Date: 20180805
  Transmission Date: 20181010
  Serious: Yes (Life-Threatening)
  Sender: FDA-Public Use
  Company Number: None

PATIENT
  Age: 52 Year
  Sex: Male
  Weight: 87.75 kg

DRUGS (5)
  1. XARELTO [Suspect]
     Active Substance: RIVAROXABAN
     Indication: ATRIAL FIBRILLATION
     Dosage: ?          QUANTITY:1 TABLET(S);?
     Route: 048
     Dates: start: 20180501, end: 20180727
  2. CENTRUM SILVER [Concomitant]
     Active Substance: MINERALS\VITAMINS
  3. WARFARIN [Concomitant]
     Active Substance: WARFARIN
  4. METOPROLOL. [Concomitant]
     Active Substance: METOPROLOL
  5. LISINOPRIL. [Concomitant]
     Active Substance: LISINOPRIL

REACTIONS (10)
  - Abdominal discomfort [None]
  - Feeling abnormal [None]
  - Panic attack [None]
  - Insomnia [None]
  - Muscle spasms [None]
  - Middle insomnia [None]
  - Emotional distress [None]
  - Suicidal ideation [None]
  - Fatigue [None]
  - Malaise [None]

NARRATIVE: CASE EVENT DATE: 20180727
